FAERS Safety Report 25062635 (Version 2)
Quarter: 2025Q2

REPORT INFORMATION
  Report Type: Spontaneous
  Country: JP (occurrence: JP)
  Receive Date: 20250311
  Receipt Date: 20250424
  Transmission Date: 20250717
  Serious: Yes (Hospitalization)
  Sender: INSMED
  Company Number: JP-INSMED, INC.-2025-00760-JP

PATIENT
  Age: 75 Year
  Sex: Male

DRUGS (8)
  1. ARIKAYCE [Suspect]
     Active Substance: AMIKACIN
     Indication: Mycobacterium avium complex infection
     Route: 055
     Dates: start: 20220414, end: 202204
  2. ARIKAYCE [Suspect]
     Active Substance: AMIKACIN
     Dosage: 590 MILLIGRAM, BIW
     Route: 055
     Dates: start: 20240408
  3. ARIKAYCE [Suspect]
     Active Substance: AMIKACIN
     Dosage: 590 MILLIGRAM, TIW ON MONDAY/WEDNESDAY/FRIDAY
     Route: 055
     Dates: start: 20240424
  4. RIFAMPIN [Concomitant]
     Active Substance: RIFAMPIN
     Indication: Mycobacterium avium complex infection
     Route: 065
     Dates: start: 201611
  5. RIFAMPIN [Concomitant]
     Active Substance: RIFAMPIN
     Route: 065
     Dates: start: 20220414
  6. CLARITHROMYCIN [Concomitant]
     Active Substance: CLARITHROMYCIN
     Indication: Mycobacterium avium complex infection
     Route: 065
     Dates: start: 201611
  7. CLARITHROMYCIN [Concomitant]
     Active Substance: CLARITHROMYCIN
     Route: 065
     Dates: start: 20220414
  8. SITAFLOXACIN [Concomitant]
     Active Substance: SITAFLOXACIN
     Indication: Mycobacterium avium complex infection
     Route: 065
     Dates: start: 2020

REACTIONS (5)
  - Feeding disorder [Unknown]
  - Pyrexia [Unknown]
  - Oropharyngeal pain [Unknown]
  - Headache [Unknown]
  - Off label use [Unknown]

NARRATIVE: CASE EVENT DATE: 20220401
